FAERS Safety Report 8303562-7 (Version None)
Quarter: 2012Q2

REPORT INFORMATION
  Report Type: 
  Country: None (occurrence: None)
  Receive Date: 20120423
  Receipt Date: 20120414
  Transmission Date: 20120825
  Serious: Yes (Hospitalization, Other)
  Sender: FDA-Public Use
  Company Number: US-BAYER-2012-003848

PATIENT
  Age: 32 Year
  Sex: Female
  Weight: 95.238 kg

DRUGS (14)
  1. YASMIN [Suspect]
     Indication: CONTRACEPTION
     Dosage: UNK
     Route: 048
     Dates: start: 20010101, end: 20060101
  2. FLEXERIL [Concomitant]
     Dosage: UNK
     Dates: start: 20070801
  3. PERCOCET [Concomitant]
     Indication: PAIN
     Dosage: UNK
     Dates: start: 20070901
  4. CLARITIN [Concomitant]
     Dosage: 10 MG, QD
     Route: 048
  5. YAZ [Suspect]
     Indication: CONTRACEPTION
     Dosage: UNK
     Route: 048
     Dates: start: 20060101, end: 20080101
  6. B6/B12 INJECTION [Concomitant]
     Dosage: EVERY MONTH
     Dates: start: 20070801
  7. OMEPRAZOLE [Concomitant]
     Dosage: UNK
     Dates: start: 20100401
  8. ANAPROX [Concomitant]
     Indication: ABDOMINAL PAIN LOWER
  9. HYDROCHLOROTHIAZIDE [Concomitant]
     Dosage: UNK
     Dates: start: 20100401
  10. ANAPROX [Concomitant]
     Indication: BACK PAIN
     Dosage: UNK
     Dates: start: 20070801
  11. SEASONIQUE [Concomitant]
     Dosage: UNK
     Dates: start: 20100401
  12. BACTRIM [Concomitant]
     Indication: URINARY TRACT INFECTION
     Dosage: UNK
     Dates: start: 20070801
  13. FLAGYL [Concomitant]
     Dosage: UNK
     Dates: start: 20070901
  14. LEVAQUIN [Concomitant]
     Dosage: UNK
     Dates: start: 20070901

REACTIONS (10)
  - GALLBLADDER DISORDER [None]
  - HEPATIC FUNCTION ABNORMAL [None]
  - VOMITING [None]
  - PAIN [None]
  - PSYCHOLOGICAL TRAUMA [None]
  - ANXIETY [None]
  - BLOOD ALKALINE PHOSPHATASE INCREASED [None]
  - INJURY [None]
  - CHOLECYSTITIS ACUTE [None]
  - EMOTIONAL DISTRESS [None]
